FAERS Safety Report 16331487 (Version 1)
Quarter: 2019Q2

REPORT INFORMATION
  Report Type: Spontaneous
  Country: US (occurrence: US)
  Receive Date: 20190517
  Receipt Date: 20190517
  Transmission Date: 20190711
  Serious: Yes (Disabling)
  Sender: FDA-Public Use
  Company Number: None

PATIENT
  Age: 54 Year
  Sex: Male

DRUGS (16)
  1. ACETAMINOPHEN. [Concomitant]
     Active Substance: ACETAMINOPHEN
  2. CLOBETASOL OINTMENT [Concomitant]
     Active Substance: CLOBETASOL
  3. TOFACITINIB [Suspect]
     Active Substance: TOFACITINIB
     Indication: RHEUMATOID ARTHRITIS
     Route: 048
     Dates: start: 20170330
  4. AMLODIPINE [Concomitant]
     Active Substance: AMLODIPINE BESYLATE
  5. GABAPENTIN. [Concomitant]
     Active Substance: GABAPENTIN
  6. HYDROXYCHLOROQUINE [Concomitant]
     Active Substance: HYDROXYCHLOROQUINE
  7. METFORMIN [Concomitant]
     Active Substance: METFORMIN HYDROCHLORIDE
  8. METOPROLOL SUCCINATE. [Concomitant]
     Active Substance: METOPROLOL SUCCINATE
  9. ATORVASTATIN [Concomitant]
     Active Substance: ATORVASTATIN
  10. RANITIDINE. [Concomitant]
     Active Substance: RANITIDINE
  11. PREDNISONE. [Concomitant]
     Active Substance: PREDNISONE
  12. CELECOXIB. [Concomitant]
     Active Substance: CELECOXIB
  13. DULOXETINE. [Concomitant]
     Active Substance: DULOXETINE
  14. GLIPIZIDE. [Concomitant]
     Active Substance: GLIPIZIDE
  15. HYDRALAZINE [Concomitant]
     Active Substance: HYDRALAZINE HYDROCHLORIDE
  16. LISINOPRIL. [Concomitant]
     Active Substance: LISINOPRIL

REACTIONS (1)
  - Herpes zoster [None]

NARRATIVE: CASE EVENT DATE: 20181119
